FAERS Safety Report 4861257-6 (Version None)
Quarter: 2005Q4

REPORT INFORMATION
  Report Type: 
  Country: None (occurrence: None)
  Receive Date: 20051220
  Receipt Date: 20041105
  Transmission Date: 20060501
  Serious: Yes (Hospitalization, Disabling)
  Sender: FDA-Public Use
  Company Number: US-MERCK-0411USA01393

PATIENT
  Age: 52 Year
  Sex: Male
  Weight: 95 kg

DRUGS (1)
  1. VIOXX [Suspect]
     Indication: JOINT STIFFNESS
     Route: 048
     Dates: start: 19991126, end: 20010101

REACTIONS (13)
  - ANXIETY [None]
  - DEPRESSION [None]
  - FEMORAL ARTERIAL STENOSIS [None]
  - HYPERTENSION [None]
  - INJURY [None]
  - ISCHAEMIA [None]
  - ISCHAEMIC LIMB PAIN [None]
  - LOSS OF CONSCIOUSNESS [None]
  - MYOCARDIAL INFARCTION [None]
  - PALPITATIONS [None]
  - POST-TRAUMATIC STRESS DISORDER [None]
  - SYNCOPE [None]
  - VASCULAR OCCLUSION [None]
